FAERS Safety Report 17855624 (Version 1)
Quarter: 2020Q2

REPORT INFORMATION
  Report Type: Spontaneous
  Country: US (occurrence: US)
  Receive Date: 20200603
  Receipt Date: 20200603
  Transmission Date: 20200714
  Serious: Yes (Hospitalization, Other)
  Sender: FDA-Public Use
  Company Number: US-PERRIGO-19US017105

PATIENT
  Age: 46 Year
  Sex: Male

DRUGS (1)
  1. PREVACID 24 HR [Suspect]
     Active Substance: LANSOPRAZOLE
     Indication: GASTROOESOPHAGEAL REFLUX DISEASE
     Dosage: UNKNOWN, UNKNOWN
     Route: 048
     Dates: start: 2009, end: 2013

REACTIONS (19)
  - Haematuria [Unknown]
  - Dialysis [Unknown]
  - End stage renal disease [Unknown]
  - Ureteric dilatation [Unknown]
  - Haemodialysis [Unknown]
  - Nephropathy [Unknown]
  - Nephrosclerosis [Unknown]
  - Nephrolithiasis [Unknown]
  - Pyelonephritis [Unknown]
  - Renal failure [Unknown]
  - Hypertensive nephropathy [Unknown]
  - Bladder hypertrophy [Unknown]
  - Dysuria [Unknown]
  - Nephrogenic anaemia [Unknown]
  - Obstructive nephropathy [Unknown]
  - Oedematous kidney [Unknown]
  - Chronic kidney disease [Unknown]
  - Acute kidney injury [Unknown]
  - Hydroureter [Unknown]

NARRATIVE: CASE EVENT DATE: 2011
